FAERS Safety Report 23799705 (Version 2)
Quarter: 2024Q2

REPORT INFORMATION
  Report Type: Report from Study
  Country: CA (occurrence: CA)
  Receive Date: 20240430
  Receipt Date: 20240516
  Transmission Date: 20240716
  Serious: Yes (Hospitalization)
  Sender: FDA-Public Use
  Company Number: CA-GSK-CA2024GSK052847

PATIENT

DRUGS (12)
  1. BELIMUMAB [Suspect]
     Active Substance: BELIMUMAB
     Indication: Systemic lupus erythematosus
     Dosage: 500 MG, MO
     Dates: start: 20160601, end: 201811
  2. BELIMUMAB [Suspect]
     Active Substance: BELIMUMAB
     Dosage: 500 MG
     Dates: start: 201907, end: 202103
  3. BELIMUMAB [Suspect]
     Active Substance: BELIMUMAB
     Dosage: 200 MG, WE
     Dates: start: 202103, end: 202108
  4. BELIMUMAB [Suspect]
     Active Substance: BELIMUMAB
     Dosage: 400 MG, MO
     Dates: start: 202108, end: 202112
  5. AMIKACIN [Concomitant]
     Active Substance: AMIKACIN
     Indication: Disseminated mycobacterium avium complex infection
     Dosage: 700 MG, 3W
     Dates: start: 20231220
  6. AZITHROMYCIN [Concomitant]
     Active Substance: AZITHROMYCIN
     Indication: Disseminated mycobacterium avium complex infection
     Dosage: 500 MG, 3W
     Dates: start: 20200521
  7. BEDAQUILINE [Concomitant]
     Active Substance: BEDAQUILINE
     Indication: Disseminated mycobacterium avium complex infection
     Dosage: 200 MG, 3W
     Dates: start: 20211214
  8. CLOFAZIMINE [Concomitant]
     Active Substance: CLOFAZIMINE
     Indication: Disseminated mycobacterium avium complex infection
     Dosage: 100 MG, QD
     Dates: start: 201904
  9. ETHAMBUTOL [Concomitant]
     Active Substance: ETHAMBUTOL HYDROCHLORIDE
     Indication: Disseminated mycobacterium avium complex infection
     Dosage: 600 MG, QD
     Dates: start: 20231208
  10. MOXIFLOXACIN [Concomitant]
     Active Substance: MOXIFLOXACIN
     Indication: Disseminated mycobacterium avium complex infection
     Dosage: 400 MG, QD
     Dates: start: 20231212
  11. CEFADROXIL [Concomitant]
     Active Substance: CEFADROXIL
     Indication: Disseminated mycobacterium avium complex infection
     Dosage: 1000 MG, BID
     Dates: start: 20221008
  12. ISAVUCONAZOLE [Concomitant]
     Active Substance: ISAVUCONAZOLE
     Indication: Disseminated mycobacterium avium complex infection
     Dosage: 200 MG, QD
     Dates: start: 20240229

REACTIONS (1)
  - COVID-19 [Recovered/Resolved]

NARRATIVE: CASE EVENT DATE: 20240423
